FAERS Safety Report 6731882-6 (Version None)
Quarter: 2010Q2

REPORT INFORMATION
  Report Type: 
  Country: None (occurrence: None)
  Receive Date: 20100514
  Receipt Date: 20100507
  Transmission Date: 20101027
  Serious: Yes (Other)
  Sender: FDA-Public Use
  Company Number: 1000013750

PATIENT
  Sex: Male

DRUGS (1)
  1. BYSTOLIC [Suspect]
     Indication: HYPERTENSION
     Dosage: 5 MG (5 MG, 1 IN 1D), ORAL
     Route: 048

REACTIONS (3)
  - FACIAL BONES FRACTURE [None]
  - FALL [None]
  - SYNCOPE [None]
